FAERS Safety Report 9495139 (Version 3)
Quarter: 2013Q4

REPORT INFORMATION
  Report Type: Report from Study
  Country: JP (occurrence: JP)
  Receive Date: 20130903
  Receipt Date: 20131213
  Transmission Date: 20140711
  Serious: Yes (Hospitalization)
  Sender: FDA-Public Use
  Company Number: JP-ACTELION-A-CH2010-37320

PATIENT
  Age: 69 Year
  Sex: Female

DRUGS (12)
  1. TRACLEER [Suspect]
     Indication: SCLERODERMA
     Dosage: 62.5 MG, BID
     Route: 048
     Dates: start: 20070731, end: 20080408
  2. TRACLEER [Suspect]
     Dosage: 62.5 MG, BID
     Route: 048
     Dates: start: 20090629
  3. POLAPREZINC [Concomitant]
  4. TEPRENONE [Concomitant]
  5. REBAMIPIDE [Concomitant]
  6. TOCOPHERYL NICOTINATE [Concomitant]
  7. BENFOTIAMINE [Concomitant]
  8. VITAMIN B12 [Concomitant]
  9. VITAMIN B6 [Concomitant]
  10. LACTOMIN [Concomitant]
  11. LANSOPRAZOLE [Concomitant]
  12. FERROUS SODIUM CITRATE [Concomitant]

REACTIONS (3)
  - Gastrointestinal haemorrhage [Recovered/Resolved]
  - Transfusion [Recovered/Resolved]
  - White blood cell count decreased [Not Recovered/Not Resolved]
